FAERS Safety Report 11044473 (Version 2)
Quarter: 2015Q2

REPORT INFORMATION
  Report Type: Spontaneous
  Country: US (occurrence: US)
  Receive Date: 20150417
  Receipt Date: 20150610
  Transmission Date: 20150821
  Serious: Yes (Hospitalization, Other)
  Sender: FDA-Public Use
  Company Number: US-BAYER-2015-117916

PATIENT
  Age: 18 Year
  Sex: Female

DRUGS (1)
  1. MIRENA [Suspect]
     Active Substance: LEVONORGESTREL
     Indication: CONTRACEPTION
     Dosage: 20 MCG/24HR, CONT
     Route: 015
     Dates: start: 20150120, end: 20150220

REACTIONS (13)
  - Urticaria [None]
  - Device allergy [None]
  - Dizziness [None]
  - Procedural pain [None]
  - Eye swelling [None]
  - Rash pruritic [None]
  - Hot flush [None]
  - Throat tightness [None]
  - Rash macular [None]
  - Pelvic pain [None]
  - Erythema [None]
  - Anaphylactic reaction [None]
  - Burning sensation [None]

NARRATIVE: CASE EVENT DATE: 20150120
